FAERS Safety Report 20632446 (Version 1)
Quarter: 2022Q1

REPORT INFORMATION
  Report Type: Other
  Country: US (occurrence: None)
  Receive Date: 20220324
  Receipt Date: 20220324
  Transmission Date: 20220424
  Serious: Yes (Hospitalization)
  Sender: FDA-Public Use
  Company Number: US-ROCHE-3045944

PATIENT
  Age: 54 Year
  Sex: Female
  Weight: 61.744 kg

DRUGS (1)
  1. OCREVUS [Suspect]
     Active Substance: OCRELIZUMAB
     Indication: Multiple sclerosis
     Route: 042

REACTIONS (4)
  - COVID-19 [Unknown]
  - Gait inability [Unknown]
  - Dysstasia [Unknown]
  - Speech disorder [Unknown]

NARRATIVE: CASE EVENT DATE: 20210701
